FAERS Safety Report 19043814 (Version 1)
Quarter: 2021Q1

REPORT INFORMATION
  Report Type: Spontaneous
  Country: US (occurrence: US)
  Receive Date: 20210323
  Receipt Date: 20210323
  Transmission Date: 20210420
  Serious: Yes (Death)
  Sender: FDA-Public Use
  Company Number: None

PATIENT
  Age: 73 Year

DRUGS (4)
  1. FLUCONAZOLE. [Concomitant]
     Active Substance: FLUCONAZOLE
  2. HYOSCYAMINE. [Concomitant]
     Active Substance: HYOSCYAMINE
  3. MORPHINE SULPHATE LIQUID [Concomitant]
     Active Substance: MORPHINE SULFATE
  4. HALOPERIDOL. [Suspect]
     Active Substance: HALOPERIDOL

REACTIONS (1)
  - Death [None]

NARRATIVE: CASE EVENT DATE: 20210323
